FAERS Safety Report 8730374 (Version 3)
Quarter: 2012Q4

REPORT INFORMATION
  Report Type: Report from Study
  Country: US (occurrence: US)
  Receive Date: 20120817
  Receipt Date: 20121102
  Transmission Date: 20130627
  Serious: Yes (Life-Threatening, Hospitalization)
  Sender: FDA-Public Use
  Company Number: PHHO2012US011915

PATIENT
  Age: 59 Year
  Sex: Male
  Weight: 89.2 kg

DRUGS (17)
  1. 5-FLUOROURACIL [Suspect]
     Indication: COLORECTAL CANCER
     Dosage: 1200 mg/m2, QD
     Dates: start: 20120809, end: 20120811
  2. 5-FLUOROURACIL [Suspect]
     Dosage: 1200 mg/m2, QD
     Dates: start: 20120919
  3. AFINITOR [Suspect]
     Indication: COLORECTAL CANCER
     Dosage: UNK
     Route: 048
     Dates: start: 20120809
  4. AFINITOR [Suspect]
     Dosage: UNK
     Route: 048
     Dates: start: 20120919
  5. OXALIPLATIN [Concomitant]
     Indication: COLORECTAL CANCER
  6. AVASTIN [Concomitant]
     Indication: COLORECTAL CANCER
     Dosage: UNK
  7. AVASTIN [Concomitant]
     Dosage: No treatment
     Dates: start: 20120809, end: 20120809
  8. DICLOFENAC [Concomitant]
  9. EMLA [Concomitant]
  10. ACYCLOVIR [Concomitant]
  11. FINASTERIDE [Concomitant]
  12. AMBIEN [Concomitant]
  13. BACLOFEN [Concomitant]
  14. ZOFRAN [Concomitant]
  15. COMPAZINE [Concomitant]
  16. FENTANYL [Concomitant]
  17. IBUPROFEN [Concomitant]

REACTIONS (5)
  - Arteriospasm coronary [Recovered/Resolved]
  - Hepatic infection [Unknown]
  - Intestinal perforation [Unknown]
  - Abdominal infection [Unknown]
  - Pericarditis [Recovered/Resolved with Sequelae]
